FAERS Safety Report 19511093 (Version 8)
Quarter: 2021Q4

REPORT INFORMATION
  Report Type: Report from Study
  Country: US (occurrence: US)
  Receive Date: 20210709
  Receipt Date: 20211205
  Transmission Date: 20220303
  Serious: Yes (Other)
  Sender: FDA-Public Use
  Company Number: US-ABBVIE-21K-163-3983789-00

PATIENT
  Sex: Male
  Weight: 99.880 kg

DRUGS (22)
  1. DUOPA [Suspect]
     Active Substance: CARBIDOPA\LEVODOPA
     Indication: Parkinson^s disease
     Dosage: 4.63 MG/ML 20 MG/ML
     Route: 050
     Dates: start: 20171027
  2. DUOPA [Suspect]
     Active Substance: CARBIDOPA\LEVODOPA
     Route: 050
     Dates: start: 20210505
  3. DUOPA [Suspect]
     Active Substance: CARBIDOPA\LEVODOPA
     Dosage: 4.63 MG/ML 20 MG/ML
     Route: 050
  4. DUOPA [Suspect]
     Active Substance: CARBIDOPA\LEVODOPA
     Dosage: 4.63 MG/ML 20 MG/ML
     Route: 050
  5. KEFLEX [Suspect]
     Active Substance: CEPHALEXIN
     Indication: Stoma site erythema
     Route: 048
     Dates: start: 20210622, end: 20210703
  6. RITALIN [Concomitant]
     Active Substance: METHYLPHENIDATE HYDROCHLORIDE
     Indication: Product used for unknown indication
     Route: 048
  7. SINEMET [Concomitant]
     Active Substance: CARBIDOPA\LEVODOPA
     Indication: Product used for unknown indication
     Route: 048
  8. VITAMIN D3 [Concomitant]
     Active Substance: CHOLECALCIFEROL
     Indication: Product used for unknown indication
     Route: 048
  9. VITAMIN B12 [Concomitant]
     Active Substance: CYANOCOBALAMIN
     Indication: Product used for unknown indication
     Route: 048
  10. MIRTAZAPINE [Concomitant]
     Active Substance: MIRTAZAPINE
     Indication: Product used for unknown indication
     Route: 048
  11. JANSSEN COVID-19 VACCINE [Concomitant]
     Active Substance: AD26.COV2.S
     Indication: COVID-19 immunisation
     Dosage: JOHNSON AND JOHNSON
     Route: 030
     Dates: start: 20210410, end: 20210410
  12. VITAMIN B1 [Concomitant]
     Active Substance: THIAMINE HYDROCHLORIDE
     Indication: Product used for unknown indication
  13. FLUOXETINE [Concomitant]
     Active Substance: FLUOXETINE HYDROCHLORIDE
     Indication: Product used for unknown indication
  14. BACLOFEN [Concomitant]
     Active Substance: BACLOFEN
     Indication: Product used for unknown indication
  15. TAMSULOSIN [Concomitant]
     Active Substance: TAMSULOSIN
     Indication: Product used for unknown indication
  16. DONEPEZIL [Concomitant]
     Active Substance: DONEPEZIL
     Indication: Product used for unknown indication
  17. CARBIDOPA\LEVODOPA [Concomitant]
     Active Substance: CARBIDOPA\LEVODOPA
     Indication: Product used for unknown indication
  18. MELATONIN [Concomitant]
     Active Substance: MELATONIN
     Indication: Product used for unknown indication
  19. RASAGILINE [Concomitant]
     Active Substance: RASAGILINE
     Indication: Product used for unknown indication
     Route: 048
  20. AMANTADINE [Concomitant]
     Active Substance: AMANTADINE
     Indication: Product used for unknown indication
     Route: 048
  21. RASAGILINE [Concomitant]
     Active Substance: RASAGILINE
     Indication: Product used for unknown indication
     Route: 048
  22. LISINOPRIL [Concomitant]
     Active Substance: LISINOPRIL
     Indication: Product used for unknown indication
     Route: 048

REACTIONS (32)
  - Bacterial infection [Not Recovered/Not Resolved]
  - Palliative care [Not Recovered/Not Resolved]
  - Cataract [Not Recovered/Not Resolved]
  - Unresponsive to stimuli [Recovered/Resolved]
  - Respiratory arrest [Not Recovered/Not Resolved]
  - Hypotension [Recovered/Resolved]
  - Wrong technique in product usage process [Not Recovered/Not Resolved]
  - Diarrhoea [Not Recovered/Not Resolved]
  - Device occlusion [Recovered/Resolved]
  - Hypotension [Recovered/Resolved]
  - Hallucination, visual [Not Recovered/Not Resolved]
  - Stoma site erythema [Recovered/Resolved]
  - Anxiety [Unknown]
  - Device leakage [Recovered/Resolved]
  - Device loosening [Recovered/Resolved]
  - Sleep apnoea syndrome [Not Recovered/Not Resolved]
  - Snoring [Not Recovered/Not Resolved]
  - Visual impairment [Not Recovered/Not Resolved]
  - Medical device site vesicles [Recovered/Resolved]
  - Stoma site discharge [Not Recovered/Not Resolved]
  - Medical device site vesicles [Recovered/Resolved]
  - Device kink [Recovered/Resolved]
  - Stoma site erythema [Not Recovered/Not Resolved]
  - Hypotension [Unknown]
  - Tinnitus [Unknown]
  - Cold sweat [Unknown]
  - Hallucination [Not Recovered/Not Resolved]
  - Parkinson^s disease [Recovered/Resolved]
  - Device infusion issue [Recovered/Resolved]
  - Medical device site vesicles [Not Recovered/Not Resolved]
  - Hypertension [Not Recovered/Not Resolved]
  - Device issue [Unknown]

NARRATIVE: CASE EVENT DATE: 20180101
